FAERS Safety Report 8334746-X (Version None)
Quarter: 2012Q2

REPORT INFORMATION
  Report Type: 
  Country: None (occurrence: None)
  Receive Date: 20120503
  Receipt Date: 20120418
  Transmission Date: 20120825
  Serious: Yes (Death, Life-Threatening)
  Sender: FDA-Public Use
  Company Number: CN-JNJFOC-20110807480

PATIENT
  Sex: Female
  Weight: 50 kg

DRUGS (3)
  1. INVEGA [Suspect]
     Indication: SCHIZOPHRENIA
     Route: 048
  2. INVEGA [Suspect]
     Route: 048
     Dates: start: 20110813, end: 20110813
  3. CLONAZEPAM [Suspect]
     Indication: SCHIZOPHRENIA
     Dosage: UNCOUNTED TABLETS
     Route: 048
     Dates: start: 20110813, end: 20110813

REACTIONS (1)
  - MULTIPLE DRUG OVERDOSE [None]
